FAERS Safety Report 11620091 (Version 2)
Quarter: 2015Q4

REPORT INFORMATION
  Report Type: Spontaneous
  Country: US (occurrence: US)
  Receive Date: 20151012
  Receipt Date: 20151015
  Transmission Date: 20160304
  Serious: No
  Sender: FDA-Public Use
  Company Number: US-SA-2015SA073668

PATIENT
  Age: 64 Year
  Sex: Male

DRUGS (2)
  1. AFREZZA [Suspect]
     Active Substance: INSULIN HUMAN
     Dosage: 1 CARTRIDGE OF 4 UNITS DAILY
     Route: 065
  2. AFREZZA [Suspect]
     Active Substance: INSULIN HUMAN
     Dosage: 2 CARTRIDGES OF 4 UNITS
     Route: 065

REACTIONS (1)
  - Blood glucose decreased [Unknown]
